FAERS Safety Report 8557854-7 (Version None)
Quarter: 2012Q3

REPORT INFORMATION
  Report Type: 
  Country: None (occurrence: None)
  Receive Date: 20120801
  Receipt Date: 20120724
  Transmission Date: 20120928
  Serious: Yes (Hospitalization)
  Sender: FDA-Public Use
  Company Number: JP-GLAXOSMITHKLINE-B0636759A

PATIENT
  Sex: Female
  Weight: 33 kg

DRUGS (12)
  1. VALTREX [Concomitant]
     Indication: GENITAL HERPES
     Route: 048
     Dates: start: 20100303, end: 20100307
  2. ARASENA-A [Concomitant]
     Indication: GENITAL HERPES
     Route: 061
     Dates: start: 20100303
  3. TYKERB [Suspect]
     Dosage: 1250MG PER DAY
     Route: 048
     Dates: start: 20100301, end: 20100304
  4. ZINC OXIDE [Concomitant]
     Indication: GENITAL HERPES
     Route: 061
     Dates: start: 20100303
  5. ALPRAZOLAM [Concomitant]
     Indication: PROPHYLAXIS
     Route: 048
     Dates: start: 20100315
  6. LOXONIN [Concomitant]
     Indication: CANCER PAIN
     Route: 062
     Dates: start: 20100406
  7. TYKERB [Suspect]
     Indication: BREAST CANCER
     Dosage: 1250MG PER DAY
     Route: 048
     Dates: start: 20100208, end: 20100221
  8. OXYCONTIN [Concomitant]
     Indication: CANCER PAIN
     Route: 048
     Dates: start: 20100328
  9. SENNOSIDE [Concomitant]
     Indication: CONSTIPATION PROPHYLAXIS
     Route: 048
     Dates: start: 20100401
  10. ERGOCALCIFEROL [Concomitant]
     Indication: GASTRITIS PROPHYLAXIS
     Route: 048
     Dates: start: 20100215
  11. XELODA [Suspect]
     Dosage: 2000MG PER DAY
     Route: 048
     Dates: start: 20100208, end: 20100221
  12. OXYCODONE HYDROCHLORIDE [Concomitant]
     Indication: CANCER PAIN
     Route: 048
     Dates: start: 20100329

REACTIONS (3)
  - WHITE BLOOD CELL COUNT DECREASED [None]
  - BONE MARROW FAILURE [None]
  - NEUTROPHIL COUNT DECREASED [None]
